FAERS Safety Report 20568595 (Version 1)
Quarter: 2022Q1

REPORT INFORMATION
  Report Type: Spontaneous
  Country: PT (occurrence: PT)
  Receive Date: 20220308
  Receipt Date: 20220308
  Transmission Date: 20220423
  Serious: Yes (Life-Threatening)
  Sender: FDA-Public Use
  Company Number: None

PATIENT
  Age: 77 Year
  Sex: Male
  Weight: 69 kg

DRUGS (6)
  1. CARBOPLATIN [Suspect]
     Active Substance: CARBOPLATIN
     Indication: Squamous cell carcinoma
     Dosage: UNK
     Route: 042
     Dates: start: 20220210, end: 20220210
  2. HYDROCORTISONE [Concomitant]
     Active Substance: HYDROCORTISONE
  3. ONDANSETRON [Concomitant]
     Active Substance: ONDANSETRON
  4. FAMOTIDINA [Concomitant]
  5. PACLITAXEL [Concomitant]
     Active Substance: PACLITAXEL
  6. CLEMASTINA [CLEMASTINE] [Concomitant]

REACTIONS (4)
  - Nausea [Recovered/Resolved]
  - Feeling hot [Recovered/Resolved]
  - Erythema [Recovered/Resolved]
  - Off label use [Unknown]

NARRATIVE: CASE EVENT DATE: 20220210
